FAERS Safety Report 6568239-7 (Version None)
Quarter: 2010Q1

REPORT INFORMATION
  Report Type: 
  Country: None (occurrence: None)
  Receive Date: 20100203
  Receipt Date: 20100125
  Transmission Date: 20100710
  Serious: Yes (Death, Hospitalization, Other)
  Sender: FDA-Public Use
  Company Number: US-ELI_LILLY_AND_COMPANY-US200911005403

PATIENT
  Sex: Male

DRUGS (9)
  1. FORTEO [Suspect]
     Dosage: 20 UG, EACH EVENING
     Dates: start: 20080101
  2. DUONEB [Concomitant]
     Dosage: UNK, EVERY 6 HRS
  3. AMIODARONE HCL [Concomitant]
     Dosage: 200 MG, DAILY (1/D)
  4. MUCINEX [Concomitant]
  5. PRINIVIL [Concomitant]
  6. OXYGEN [Concomitant]
     Dosage: 3-5 L CONTINUOUSLY
  7. SPIRONOLACTONE [Concomitant]
  8. COUMADIN [Concomitant]
     Indication: ATRIAL FIBRILLATION
     Dosage: 2.5 MG, MON + WED
  9. COUMADIN [Concomitant]
     Dosage: 5 MG, REMAINING DAYS OF THE WEEK

REACTIONS (7)
  - ATRIAL FIBRILLATION [None]
  - COAGULOPATHY [None]
  - NON-SMALL CELL LUNG CANCER [None]
  - PLEURAL EFFUSION [None]
  - PNEUMONIA [None]
  - PULMONARY EMBOLISM [None]
  - RESPIRATORY FAILURE [None]
